FAERS Safety Report 6020389-X (Version None)
Quarter: 2008Q4

REPORT INFORMATION
  Report Type: 
  Country: None (occurrence: None)
  Receive Date: 20081226
  Receipt Date: 20081218
  Transmission Date: 20090506
  Serious: Yes (Death)
  Sender: FDA-Public Use
  Company Number: IL-MERCK-0812USA04308

PATIENT
  Age: 73 Year
  Sex: Female

DRUGS (2)
  1. DECADRON [Suspect]
     Indication: NON-HODGKIN'S LYMPHOMA
     Route: 048
  2. METHOTREXATE [Concomitant]
     Indication: NON-HODGKIN'S LYMPHOMA
     Route: 048

REACTIONS (1)
  - DRUG INEFFECTIVE [None]
